FAERS Safety Report 7364796-1 (Version None)
Quarter: 2011Q1

REPORT INFORMATION
  Report Type: 
  Country: None (occurrence: None)
  Receive Date: 20110321
  Receipt Date: 20110309
  Transmission Date: 20110831
  Serious: Yes (Hospitalization)
  Sender: FDA-Public Use
  Company Number: PHHY2011FR19682

PATIENT
  Age: 70 Year
  Sex: Male

DRUGS (4)
  1. KEPPRA [Concomitant]
  2. DELURSAN [Concomitant]
  3. NEORAL [Suspect]
     Indication: BUDD-CHIARI SYNDROME
     Dosage: 25 MG, BID
  4. CERTICAN [Concomitant]

REACTIONS (5)
  - PYREXIA [None]
  - AUTONOMIC NERVOUS SYSTEM IMBALANCE [None]
  - INFECTION [None]
  - DISORIENTATION [None]
  - IMMUNOSUPPRESSANT DRUG LEVEL DECREASED [None]
